FAERS Safety Report 23098850 (Version 2)
Quarter: 2023Q4

REPORT INFORMATION
  Report Type: Other
  Country: US (occurrence: None)
  Receive Date: 20231024
  Receipt Date: 20231107
  Transmission Date: 20240110
  Serious: No
  Sender: FDA-Public Use
  Company Number: US-ROCHE-3443529

PATIENT
  Age: 62 Year
  Sex: Female

DRUGS (1)
  1. OCREVUS [Suspect]
     Active Substance: OCRELIZUMAB
     Indication: Relapsing multiple sclerosis
     Dosage: DATE OF TREATMENT: 19/JAN/2021, 25/AUG/2021, 10/MAR/2022, 06/OCT/2022, 13/APR/2023, 28/SEP/2023, 19/
     Route: 065

REACTIONS (1)
  - COVID-19 [Unknown]
